FAERS Safety Report 9084433 (Version 1)
Quarter: 2013Q1

REPORT INFORMATION
  Report Type: Spontaneous
  Country: PR (occurrence: PR)
  Receive Date: 20130130
  Receipt Date: 20130130
  Transmission Date: 20140127
  Serious: No
  Sender: FDA-Public Use
  Company Number: PR-ABBOTT-12P-131-0988797-00

PATIENT
  Sex: Female
  Weight: 68.1 kg

DRUGS (2)
  1. HUMIRA [Suspect]
     Indication: PSORIASIS
     Route: 058
     Dates: start: 201207, end: 20120903
  2. UNKNOWN CREAMS [Concomitant]
     Indication: PSORIASIS
     Route: 061

REACTIONS (2)
  - Dengue fever [Recovering/Resolving]
  - Sinusitis [Recovering/Resolving]
